FAERS Safety Report 14469057 (Version 3)
Quarter: 2020Q4

REPORT INFORMATION
  Report Type: Spontaneous
  Country: ES (occurrence: ES)
  Receive Date: 20180131
  Receipt Date: 20201225
  Transmission Date: 20210113
  Serious: Yes (Death, Other)
  Sender: FDA-Public Use
  Company Number: ES-JNJFOC-20180129353

PATIENT

DRUGS (12)
  1. STELARA [Suspect]
     Active Substance: USTEKINUMAB
     Indication: ARTHRITIS ENTEROPATHIC
  2. STELARA [Suspect]
     Active Substance: USTEKINUMAB
     Indication: SERONEGATIVE ARTHRITIS
  3. STELARA [Suspect]
     Active Substance: USTEKINUMAB
     Indication: RHEUMATOID ARTHRITIS
     Route: 058
  4. STELARA [Suspect]
     Active Substance: USTEKINUMAB
     Indication: ANKYLOSING SPONDYLITIS
  5. STELARA [Suspect]
     Active Substance: USTEKINUMAB
     Indication: SAPHO SYNDROME
  6. STELARA [Suspect]
     Active Substance: USTEKINUMAB
     Indication: SYSTEMIC LUPUS ERYTHEMATOSUS
  7. STELARA [Suspect]
     Active Substance: USTEKINUMAB
     Indication: JUVENILE IDIOPATHIC ARTHRITIS
  8. STELARA [Suspect]
     Active Substance: USTEKINUMAB
     Indication: SPONDYLOARTHROPATHY
  9. STELARA [Suspect]
     Active Substance: USTEKINUMAB
     Indication: ANKYLOSING SPONDYLITIS
  10. STELARA [Suspect]
     Active Substance: USTEKINUMAB
     Indication: SERONEGATIVE ARTHRITIS
  11. STELARA [Suspect]
     Active Substance: USTEKINUMAB
     Indication: BEHCET^S SYNDROME
  12. STELARA [Suspect]
     Active Substance: USTEKINUMAB
     Indication: PSORIATIC ARTHROPATHY

REACTIONS (5)
  - Death [Fatal]
  - Neoplasm malignant [Unknown]
  - Adverse event [Unknown]
  - Drug ineffective [Unknown]
  - Exposure during pregnancy [Unknown]
